FAERS Safety Report 10928253 (Version 1)
Quarter: 2015Q1

REPORT INFORMATION
  Report Type: Spontaneous
  Country: US (occurrence: None)
  Receive Date: 20150317
  Receipt Date: 20150317
  Transmission Date: 20150721
  Serious: Yes (Hospitalization)
  Sender: FDA-Public Use
  Company Number: None

PATIENT
  Age: 58 Year
  Sex: Female
  Weight: 64.9 kg

DRUGS (1)
  1. MIRTAZAPINE. [Suspect]
     Active Substance: MIRTAZAPINE
     Indication: DRUG THERAPY
     Route: 048
     Dates: start: 20140918, end: 20141007

REACTIONS (4)
  - Mental status changes [None]
  - Delirium [None]
  - Asthenia [None]
  - Accidental overdose [None]

NARRATIVE: CASE EVENT DATE: 20141015
